FAERS Safety Report 7915653 (Version 8)
Quarter: 2012Q4

REPORT INFORMATION
  Report Type: 
  Country: JP (occurrence: JP)
  Receive Date: 20110426
  Receipt Date: 20121120
  Transmission Date: 20130627
  Serious: Yes (Hospitalization, Disabling)
  Sender: FDA-Public Use
  Company Number: JP-ABBOTT-11P-087-0720662-00

PATIENT
  Age: 41 Year
  Sex: Male
  Weight: 64 kg

DRUGS (7)
  1. HUMIRA [Suspect]
     Indication: CROHN^S DISEASE
     Route: 058
     Dates: start: 20101208, end: 20101208
  2. HUMIRA [Suspect]
     Dates: start: 20101222, end: 20101222
  3. HUMIRA [Suspect]
     Dates: start: 20110105, end: 20110413
  4. WARFARIN POTASSIUM [Concomitant]
     Indication: PROTEIN S DEFICIENCY
     Route: 048
  5. CILOSTAZOL [Concomitant]
     Indication: PROTEIN S DEFICIENCY
     Route: 048
  6. BENZBROMARONE [Concomitant]
     Indication: HYPERURICAEMIA
     Route: 048
  7. RABEPRAZOLE SODIUM [Concomitant]
     Indication: GASTROINTESTINAL DISORDER
     Route: 048

REACTIONS (2)
  - Mononeuropathy multiplex [Recovering/Resolving]
  - Cranial nerve palsies multiple [Recovering/Resolving]
